FAERS Safety Report 17801168 (Version 1)
Quarter: 2020Q2

REPORT INFORMATION
  Report Type: Report from Study
  Country: PR (occurrence: PR)
  Receive Date: 20200519
  Receipt Date: 20200519
  Transmission Date: 20200714
  Serious: Yes (Hospitalization)
  Sender: FDA-Public Use
  Company Number: PR-ROCHE-2602564

PATIENT
  Sex: Female

DRUGS (2)
  1. OCREVUS [Suspect]
     Active Substance: OCRELIZUMAB
     Indication: RELAPSING MULTIPLE SCLEROSIS
     Dosage: DATE OF TREATMENT: , 09/DEC/2019,05/DEC/2018?03/NOV/2017, 17/NOV/2017, 30/MAY/2018: 300 MG
     Route: 042
     Dates: start: 20171103
  2. OCREVUS [Suspect]
     Active Substance: OCRELIZUMAB
     Dosage: DATE OF TREATMENT: 29/NOV/2018, 03/JUN/2019
     Route: 042

REACTIONS (1)
  - COVID-19 [Unknown]
